FAERS Safety Report 24921356 (Version 1)
Quarter: 2025Q1

REPORT INFORMATION
  Report Type: Spontaneous
  Country: US (occurrence: US)
  Receive Date: 20250204
  Receipt Date: 20250204
  Transmission Date: 20250409
  Serious: No
  Sender: TARO
  Company Number: US-TARO PHARMACEUTICALS USA INC.-2025TAR00102

PATIENT

DRUGS (2)
  1. ADAPALENE [Suspect]
     Active Substance: ADAPALENE
     Indication: Acne cystic
     Route: 065
     Dates: start: 202409, end: 20241127
  2. ACCUTANE [Concomitant]
     Active Substance: ISOTRETINOIN
     Indication: Acne cystic
     Route: 065

REACTIONS (2)
  - Facial pain [Not Recovered/Not Resolved]
  - Acne [Not Recovered/Not Resolved]

NARRATIVE: CASE EVENT DATE: 20240801
